FAERS Safety Report 4379540-X (Version None)
Quarter: 2004Q2

REPORT INFORMATION
  Report Type: 
  Country: None (occurrence: None)
  Receive Date: 20040614
  Receipt Date: 20040601
  Transmission Date: 20050107
  Serious: Yes (Hospitalization, Other)
  Sender: FDA-Public Use
  Company Number: 2004037542

PATIENT
  Age: 81 Year
  Sex: Male
  Weight: 99.7913 kg

DRUGS (8)
  1. LIPITOR [Suspect]
     Indication: BLOOD CHOLESTEROL INCREASED
  2. CLOPIDOGREL BISULFATE [Concomitant]
  3. ACETYLSALICYLIC ACID SRT [Concomitant]
  4. LISINOPRIL [Concomitant]
  5. ANTI-DIABETICS (ANTI-DIABETICS) [Concomitant]
  6. DOXAZOSIN MESYLATE [Concomitant]
  7. SALBUTAMOL (SALBUTAMOL) [Concomitant]
  8. FUROSEMIDE [Concomitant]

REACTIONS (5)
  - ANAEMIA [None]
  - CARDIAC FAILURE CONGESTIVE [None]
  - CEREBROVASCULAR ACCIDENT [None]
  - CYSTITIS [None]
  - HAEMATURIA [None]
